FAERS Safety Report 10188451 (Version 1)
Quarter: 2014Q2

REPORT INFORMATION
  Report Type: Spontaneous
  Country: US (occurrence: US)
  Receive Date: 20140522
  Receipt Date: 20140522
  Transmission Date: 20141212
  Serious: No
  Sender: FDA-Public Use
  Company Number: US-SA-2014SA047884

PATIENT
  Age: 60 Year
  Sex: Female

DRUGS (5)
  1. SOLOSTAR [Suspect]
     Indication: TYPE 2 DIABETES MELLITUS
     Dates: start: 201208
  2. LANTUS SOLOSTAR [Suspect]
     Indication: TYPE 2 DIABETES MELLITUS
     Dosage: DOSE:23 UNIT(S)
     Route: 058
     Dates: start: 201208
  3. KOMBIGLYZE [Concomitant]
     Indication: DIABETES MELLITUS
     Dosage: AT EVENING
     Dates: start: 201308
  4. VITAMINS [Concomitant]
  5. TYLENOL [Concomitant]

REACTIONS (1)
  - Malaise [Unknown]
